FAERS Safety Report 12939629 (Version 2)
Quarter: 2016Q4

REPORT INFORMATION
  Report Type: Spontaneous
  Country: IT (occurrence: IT)
  Receive Date: 20161115
  Receipt Date: 20161128
  Transmission Date: 20170207
  Serious: Yes (Death)
  Sender: FDA-Public Use
  Company Number: IT-PFIZER INC-2016527537

PATIENT
  Age: 81 Year
  Sex: Female
  Weight: 46 kg

DRUGS (4)
  1. BOSULIF [Suspect]
     Active Substance: BOSUTINIB MONOHYDRATE
     Indication: CHRONIC MYELOID LEUKAEMIA
     Dosage: 300 MG, DAILY
     Route: 048
     Dates: start: 20150325, end: 20161028
  2. QUINAPRIL HYDROCHLORIDE AND HYDROCHLOROTHIAZIDE [Concomitant]
     Active Substance: HYDROCHLOROTHIAZIDE\QUINAPRIL HYDROCHLORIDE
     Indication: HYPERTENSION
     Dosage: 20/12.5 MG, 1 DOSAGE FORM DAILY
     Route: 048
  3. NIFEREX /00023531/ [Concomitant]
  4. PRAXILENE [Concomitant]
     Active Substance: NAFRONYL
     Indication: VASODILATATION
     Dosage: 1 DF, DAILY
     Route: 048

REACTIONS (1)
  - Cerebral haemorrhage [Fatal]

NARRATIVE: CASE EVENT DATE: 20161028
